FAERS Safety Report 14481925 (Version 1)
Quarter: 2018Q1

REPORT INFORMATION
  Report Type: Spontaneous
  Country: HR (occurrence: HR)
  Receive Date: 20180202
  Receipt Date: 20180202
  Transmission Date: 20180509
  Serious: Yes (Hospitalization)
  Sender: FDA-Public Use
  Company Number: HR-TEVA-2018-HR-852327

PATIENT
  Age: 49 Year
  Sex: Female

DRUGS (1)
  1. CISPLATIN PLIVA [Suspect]
     Active Substance: CISPLATIN
     Indication: CERVIX DISORDER
     Dosage: 50 MG; 120 MG
     Route: 042
     Dates: start: 20171026, end: 20171026

REACTIONS (6)
  - Anaphylactic shock [Recovered/Resolved]
  - Altered state of consciousness [Recovered/Resolved]
  - Choking [Recovered/Resolved]
  - Blood pressure decreased [Recovered/Resolved]
  - Rash pruritic [Recovered/Resolved]
  - Dyspnoea [Recovered/Resolved]

NARRATIVE: CASE EVENT DATE: 20171026
